FAERS Safety Report 9471212 (Version 1)
Quarter: 2013Q3

REPORT INFORMATION
  Report Type: Spontaneous
  Country: US (occurrence: US)
  Receive Date: 20130822
  Receipt Date: 20130822
  Transmission Date: 20140515
  Serious: No
  Sender: FDA-Public Use
  Company Number: US-TARO-2012P1061167

PATIENT
  Age: 38 Year
  Sex: Male
  Weight: 111.13 kg

DRUGS (4)
  1. TERBINAFINE HCL CREAM 1% (ATHLETES FOOT) [Suspect]
     Indication: TINEA PEDIS
     Route: 061
     Dates: start: 20121013, end: 20121014
  2. ASPIRIN [Concomitant]
  3. MULTIVITAMIN [Concomitant]
  4. ATENOLOL [Concomitant]

REACTIONS (4)
  - Erythema [Not Recovered/Not Resolved]
  - Thermal burn [Not Recovered/Not Resolved]
  - Tinea pedis [None]
  - Pain [None]
